FAERS Safety Report 14378388 (Version 2)
Quarter: 2019Q2

REPORT INFORMATION
  Report Type: Report from Study
  Country: US (occurrence: US)
  Receive Date: 20180111
  Receipt Date: 20190605
  Transmission Date: 20190711
  Serious: Yes (Other)
  Sender: FDA-Public Use
  Company Number: US-SA-2018SA005061

PATIENT
  Age: 66 Year
  Sex: Male

DRUGS (1)
  1. INSULIN GLARGINE [Suspect]
     Active Substance: INSULIN GLARGINE
     Dosage: 36 U, QD
     Route: 058

REACTIONS (5)
  - Product dose omission [Not Recovered/Not Resolved]
  - Angiopathy [Unknown]
  - Staphylococcal infection [Unknown]
  - Blood glucose increased [Unknown]
  - Thrombosis [Unknown]
